FAERS Safety Report 9330858 (Version 1)
Quarter: 2013Q2

REPORT INFORMATION
  Report Type: Spontaneous
  Country: US (occurrence: None)
  Receive Date: 20130604
  Receipt Date: 20130604
  Transmission Date: 20140414
  Serious: Yes (Life-Threatening)
  Sender: FDA-Public Use
  Company Number: None

PATIENT
  Age: 2 Month
  Sex: Female

DRUGS (1)
  1. KEPPRA [Suspect]
     Route: 048

REACTIONS (3)
  - Agitation [None]
  - Diet refusal [None]
  - Respiratory arrest [None]
